FAERS Safety Report 7583746-6 (Version None)
Quarter: 2011Q2

REPORT INFORMATION
  Report Type: 
  Country: None (occurrence: None)
  Receive Date: 20110630
  Receipt Date: 20110620
  Transmission Date: 20111010
  Serious: Yes (Death)
  Sender: FDA-Public Use
  Company Number: LU-ROCHE-784420

PATIENT
  Age: 50 Year
  Sex: Male
  Weight: 62 kg

DRUGS (4)
  1. AMLODIPINE [Concomitant]
     Indication: BENIGN PROSTATIC HYPERPLASIA
     Route: 048
     Dates: start: 20010101, end: 20110301
  2. CYCLOSPORINE [Concomitant]
     Indication: RENAL TRANSPLANT
     Route: 048
     Dates: start: 20020701, end: 20101001
  3. CELLCEPT [Suspect]
     Indication: RENAL TRANSPLANT
     Route: 048
     Dates: start: 20020701, end: 20110101
  4. PREDNISONE [Concomitant]
     Indication: RENAL TRANSPLANT
     Route: 048
     Dates: start: 20020701, end: 20110301

REACTIONS (1)
  - LYMPHOMA [None]
